FAERS Safety Report 4294551-0 (Version None)
Quarter: 2004Q1

REPORT INFORMATION
  Report Type: 
  Country: None (occurrence: None)
  Receive Date: 20040211
  Receipt Date: 20040130
  Transmission Date: 20041129
  Serious: Yes (Life-Threatening, Hospitalization)
  Sender: FDA-Public Use
  Company Number: 03P-087-0222213-00

PATIENT
  Age: 30 Year
  Sex: Male

DRUGS (9)
  1. NORVIR [Suspect]
     Indication: HIV INFECTION
     Dosage: 200 MG, 1 IN 1 D, PER ORAL
     Route: 048
     Dates: start: 20020924, end: 20020927
  2. LAMIVUDINE [Suspect]
     Indication: HIV INFECTION
     Dosage: 300 MG, 1 IN 1 D, PER ORAL
     Route: 048
     Dates: start: 20020909
  3. EFAVIRENZ [Suspect]
     Indication: HIV INFECTION
     Dosage: 600 MG, 1 IN 1 D, PER ORAL
     Route: 048
     Dates: start: 20020909, end: 20020924
  4. SAQUINAVIR [Suspect]
     Indication: HIV INFECTION
     Dosage: 800 MG, 1 IN 1 D, PER ORAL
     Route: 048
     Dates: start: 20020924, end: 20020927
  5. ZIDOVUDINE [Suspect]
     Indication: HIV INFECTION
     Dosage: 400 MG, 1 IN 1 D, PER ORAL
     Route: 048
     Dates: start: 20021004
  6. NELFINAVIR [Suspect]
     Indication: HIV INFECTION
     Dosage: 2.5 GM, 1 IN 1 D, PER ORAL
     Route: 048
     Dates: start: 20021004, end: 20021011
  7. NELFINAVIR [Suspect]
     Indication: HIV INFECTION
     Dosage: 2.5 GM, 1 IN 1 D, PER ORAL
     Route: 048
     Dates: start: 20021206
  8. STAVUDINE [Suspect]
     Indication: HIV INFECTION
     Dosage: 75 MG, 1 IN 1 D, PER ORAL
     Route: 048
     Dates: start: 22020909, end: 20020924
  9. FLUCONAZOLE [Concomitant]

REACTIONS (9)
  - ANOREXIA [None]
  - DIARRHOEA [None]
  - HEPATITIS B [None]
  - HYPOAESTHESIA [None]
  - NAUSEA [None]
  - PYREXIA [None]
  - RASH [None]
  - STOMATITIS [None]
  - VOMITING [None]
